FAERS Safety Report 13497197 (Version 1)
Quarter: 2017Q2

REPORT INFORMATION
  Report Type: Spontaneous
  Country: US (occurrence: US)
  Receive Date: 20170428
  Receipt Date: 20170428
  Transmission Date: 20170830
  Serious: Yes (Other)
  Sender: FDA-Public Use
  Company Number: US-PFIZER INC-2017183799

PATIENT
  Age: 63 Year
  Sex: Female

DRUGS (10)
  1. ALBUTEROL SULFATE. [Suspect]
     Active Substance: ALBUTEROL SULFATE
     Dosage: UNK
     Route: 055
  2. QUETIAPINE. [Concomitant]
     Active Substance: QUETIAPINE
     Dosage: 600 MG, AT BEDTIME
  3. ATROVENT [Suspect]
     Active Substance: IPRATROPIUM BROMIDE
     Dosage: UNK
  4. BUPROPION. [Concomitant]
     Active Substance: BUPROPION
     Dosage: UNK
  5. GLADEM [Suspect]
     Active Substance: SERTRALINE HYDROCHLORIDE
     Dosage: UNK
  6. GABAPENTIN. [Concomitant]
     Active Substance: GABAPENTIN
     Dosage: 1200 MG, DAILY
  7. SPIRIVA [Suspect]
     Active Substance: TIOTROPIUM BROMIDE MONOHYDRATE
     Dosage: UNK
  8. LAMOTRIGINE. [Concomitant]
     Active Substance: LAMOTRIGINE
     Dosage: 50 MG, 1X/DAY
  9. INFLAMMIDE [Suspect]
     Active Substance: BUDESONIDE
     Dosage: UNK
  10. MODAFINIL. [Concomitant]
     Active Substance: MODAFINIL
     Dosage: 400 MG, AT BED TIME

REACTIONS (1)
  - Invasive ductal breast carcinoma [Unknown]
